FAERS Safety Report 9132645 (Version 4)
Quarter: 2014Q2

REPORT INFORMATION
  Report Type: Spontaneous
  Country: US (occurrence: US)
  Receive Date: 20130301
  Receipt Date: 20140624
  Transmission Date: 20141212
  Serious: Yes (Hospitalization)
  Sender: FDA-Public Use
  Company Number: US-BAYER-2013-023743

PATIENT
  Age: 26 Year
  Sex: Female

DRUGS (1)
  1. MIRENA [Suspect]
     Indication: CONTRACEPTION
     Dosage: 20 MCG/24HR, CONT
     Route: 015
     Dates: start: 20061030, end: 20120501

REACTIONS (10)
  - Cerebral thrombosis [Not Recovered/Not Resolved]
  - Uterine perforation [Not Recovered/Not Resolved]
  - Headache [Not Recovered/Not Resolved]
  - Pregnancy with contraceptive device [None]
  - Injury [None]
  - Pain [Not Recovered/Not Resolved]
  - Emotional distress [None]
  - Drug ineffective [None]
  - Device misuse [None]
  - Device issue [None]
